FAERS Safety Report 12565407 (Version 1)
Quarter: 2016Q3

REPORT INFORMATION
  Report Type: Report from Study
  Country: NL (occurrence: NL)
  Receive Date: 20160718
  Receipt Date: 20160718
  Transmission Date: 20161109
  Serious: Yes (Death, Life-Threatening, Hospitalization)
  Sender: FDA-Public Use
  Company Number: NL-ELI_LILLY_AND_COMPANY-NL201604003791

PATIENT
  Age: 58 Year
  Sex: Male
  Weight: 71 kg

DRUGS (6)
  1. OXYCODONE [Concomitant]
     Active Substance: OXYCODONE
     Indication: PAIN
     Dosage: UNK, PRN
     Dates: start: 20160329
  2. ALBERT HEIJN PARACETAMOL [Concomitant]
     Indication: PAIN
     Dosage: UNK, PRN
     Dates: start: 20160329
  3. RAMUCIRUMAB [Suspect]
     Active Substance: RAMUCIRUMAB
     Indication: BLADDER CANCER
     Dosage: 710 MG, CYCLICAL
     Route: 042
     Dates: start: 20160331, end: 20160331
  4. DOCETAXEL. [Suspect]
     Active Substance: DOCETAXEL
     Indication: TRANSITIONAL CELL CARCINOMA
     Dosage: 75 MG/M2, CYCLICAL
     Route: 042
     Dates: start: 20160331, end: 20160331
  5. FENTANYL. [Concomitant]
     Active Substance: FENTANYL
     Indication: PAIN
     Dosage: 12 DF, UNK
     Dates: start: 20160329
  6. LACTULOSE. [Concomitant]
     Active Substance: LACTULOSE
     Indication: CONSTIPATION
     Dosage: UNK
     Dates: start: 20160329

REACTIONS (1)
  - Basilar artery thrombosis [Fatal]

NARRATIVE: CASE EVENT DATE: 20160411
